FAERS Safety Report 10373679 (Version 1)
Quarter: 2014Q1

REPORT INFORMATION
  Report Type: Spontaneous
  Country: US (occurrence: None)
  Receive Date: 20140306
  Receipt Date: 20140306
  Transmission Date: 20141002
  Serious: Yes (Hospitalization)
  Sender: FDA-Public Use
  Company Number: 163-21880-13050819

PATIENT
  Age: 81 Year
  Sex: Male

DRUGS (20)
  1. REVLIMID (LENALIDOMIDE) (5 MILLIGRAM, CAPSULES) [Suspect]
     Indication: MYELODYSPLASTIC SYNDROME
     Route: 048
     Dates: start: 20120801
  2. GEMFIBROZIL [Concomitant]
  3. CALCIPOTRIENE [Concomitant]
  4. ALLOPURINOL [Concomitant]
  5. METOPROLOL [Concomitant]
  6. OXYBUTYNIN [Concomitant]
  7. TAMSULOSIN [Concomitant]
  8. CARBAMAZEPINE [Concomitant]
  9. VENLAFAXINE [Concomitant]
  10. CALCIUM [Concomitant]
  11. FLUOCINONIDE [Concomitant]
  12. OLANZAPINE [Concomitant]
  13. COLCHICINE [Concomitant]
  14. CARBIDOPA [Concomitant]
  15. FISH OIL [Concomitant]
  16. MELATONIN [Concomitant]
  17. CLONAZEPAM [Concomitant]
  18. NAPROXEN [Concomitant]
  19. ESOMEPRAZOLE [Concomitant]
  20. DONEPEZIL [Concomitant]

REACTIONS (2)
  - Fall [None]
  - Arthralgia [None]
